FAERS Safety Report 8585514-5 (Version None)
Quarter: 2012Q3

REPORT INFORMATION
  Report Type: 
  Country: None (occurrence: None)
  Receive Date: 20120810
  Receipt Date: 20120802
  Transmission Date: 20120928
  Serious: Yes (Hospitalization)
  Sender: FDA-Public Use
  Company Number: JP-VERTEX PHARMACEUTICALS INC.-AE-2012-011715

PATIENT
  Age: 74 Year
  Sex: Male

DRUGS (8)
  1. TELAVIC (TELAPREVIR) [Suspect]
     Route: 048
     Dates: start: 20120718
  2. RIBAVIRIN [Concomitant]
     Route: 048
     Dates: start: 20120718
  3. TELAVIC (TELAPREVIR) [Suspect]
     Indication: HEPATITIS C
     Route: 048
     Dates: start: 20120606, end: 20120711
  4. RIBAVIRIN [Concomitant]
     Route: 048
     Dates: start: 20120627, end: 20120711
  5. PEGINTERFERON ALFA-2B [Concomitant]
     Route: 058
     Dates: start: 20120718
  6. PEGINTERFERON ALFA-2B [Concomitant]
     Route: 058
     Dates: start: 20120606, end: 20120711
  7. RIBAVIRIN [Concomitant]
     Route: 048
     Dates: start: 20120606, end: 20120626
  8. DILTIAZEM HCL [Concomitant]
     Route: 048

REACTIONS (1)
  - URINARY TRACT INFECTION [None]
